FAERS Safety Report 4765127-3 (Version None)
Quarter: 2005Q3

REPORT INFORMATION
  Report Type: 
  Country: None (occurrence: None)
  Receive Date: 20050906
  Receipt Date: 20050819
  Transmission Date: 20060218
  Serious: Yes (Life-Threatening, Other)
  Sender: FDA-Public Use
  Company Number: USA0508105961

PATIENT
  Age: 56 Year
  Sex: Female

DRUGS (4)
  1. CYMBALTA [Suspect]
  2. COUMADIN [Concomitant]
  3. LIPITOR [Concomitant]
  4. TOPAMAX [Concomitant]

REACTIONS (6)
  - CONTUSION [None]
  - DRUG INTERACTION [None]
  - GASTROINTESTINAL HAEMORRHAGE [None]
  - HAEMORRHAGE [None]
  - INTERNATIONAL NORMALISED RATIO INCREASED [None]
  - PROTHROMBIN TIME PROLONGED [None]
